FAERS Safety Report 10384361 (Version 1)
Quarter: 2014Q3

REPORT INFORMATION
  Report Type: Spontaneous
  Country: US (occurrence: None)
  Receive Date: 20140813
  Receipt Date: 20140813
  Transmission Date: 20150326
  Serious: No
  Sender: FDA-Public Use
  Company Number: None

PATIENT
  Age: 36 Year
  Sex: Female

DRUGS (1)
  1. LUPRON DEPOT [Suspect]
     Active Substance: LEUPROLIDE ACETATE
     Indication: INFERTILITY FEMALE
     Dosage: LUPRON DEPOT  3.75MG  EVERY MONTH  IM
     Route: 030
     Dates: start: 20140508, end: 20140807

REACTIONS (2)
  - Medication error [None]
  - Pregnancy [None]

NARRATIVE: CASE EVENT DATE: 20140807
